FAERS Safety Report 7154259-0 (Version None)
Quarter: 2010Q4

REPORT INFORMATION
  Report Type: 
  Country: None (occurrence: None)
  Receive Date: 20101213
  Receipt Date: 20101130
  Transmission Date: 20110411
  Serious: Yes (Other)
  Sender: FDA-Public Use
  Company Number: US-PFIZER INC-2010162602

PATIENT
  Sex: Female

DRUGS (2)
  1. LYRICA [Suspect]
  2. PROTONIX [Suspect]

REACTIONS (2)
  - ASTHMA [None]
  - MUSCLE DISORDER [None]
